FAERS Safety Report 4911893-3 (Version None)
Quarter: 2006Q1

REPORT INFORMATION
  Report Type: 
  Country: None (occurrence: None)
  Receive Date: 20060213
  Receipt Date: 20060213
  Transmission Date: 20060701
  Serious: Yes (Other)
  Sender: FDA-Public Use
  Company Number: None

PATIENT
  Sex: Male
  Weight: 67.7674 kg

DRUGS (4)
  1. OXYCONTIN [Suspect]
     Indication: ARTHRALGIA
  2. OXYCONTIN [Suspect]
     Indication: BACK PAIN
  3. OXYCONTIN [Suspect]
     Indication: OSTEOARTHRITIS
  4. OXYCONTIN [Suspect]
     Indication: PAIN IN EXTREMITY

REACTIONS (2)
  - DRUG INEFFECTIVE [None]
  - THERAPEUTIC RESPONSE UNEXPECTED WITH DRUG SUBSTITUTION [None]
